FAERS Safety Report 25553291 (Version 1)
Quarter: 2025Q3

REPORT INFORMATION
  Report Type: Report from Study
  Country: EU (occurrence: EU)
  Receive Date: 20250715
  Receipt Date: 20250715
  Transmission Date: 20251020
  Serious: Yes (Other)
  Sender: ROCHE
  Company Number: US-ROCHE-10000077822

PATIENT

DRUGS (1)
  1. OCRELIZUMAB [Suspect]
     Active Substance: OCRELIZUMAB
     Indication: Multiple sclerosis
     Route: 065

REACTIONS (23)
  - Hypogammaglobulinaemia [Unknown]
  - Infection [Unknown]
  - Drug ineffective [Unknown]
  - Drug intolerance [Unknown]
  - Upper respiratory tract infection [Unknown]
  - Urinary tract infection [Unknown]
  - Infusion related reaction [Unknown]
  - Hypersensitivity [Unknown]
  - COVID-19 [Unknown]
  - Febrile neutropenia [Unknown]
  - Breast cancer [Unknown]
  - Transitional cell carcinoma [Unknown]
  - Diffuse large B-cell lymphoma [Unknown]
  - Malignant melanoma [Unknown]
  - Lung adenocarcinoma [Unknown]
  - Liver disorder [Recovering/Resolving]
  - Pneumonia [Unknown]
  - Alopecia areata [Unknown]
  - Dermatitis atopic [Unknown]
  - Psoriasis [Unknown]
  - Deep vein thrombosis [Unknown]
  - Encephalitis autoimmune [Unknown]
  - Vasculitis [Unknown]
